FAERS Safety Report 10866236 (Version 3)
Quarter: 2015Q3

REPORT INFORMATION
  Report Type: Spontaneous
  Country: BE (occurrence: BE)
  Receive Date: 20150225
  Receipt Date: 20150715
  Transmission Date: 20151125
  Serious: Yes (Hospitalization)
  Sender: FDA-Public Use
  Company Number: BE-ROCHE-1542972

PATIENT
  Age: 82 Year
  Sex: Male

DRUGS (11)
  1. DAFALGAN [Concomitant]
     Active Substance: ACETAMINOPHEN
  2. ACETYLSALICYLIC ACID [Concomitant]
     Active Substance: ASPIRIN
  3. TRAZODONE [Concomitant]
     Active Substance: TRAZODONE HYDROCHLORIDE
  4. LORAMET [Concomitant]
     Active Substance: LORMETAZEPAM
  5. LUCENTIS [Suspect]
     Active Substance: RANIBIZUMAB
     Dosage: LEFT EYE, RECEIVED TOTAL 6 INJECTIONS.
     Route: 050
     Dates: start: 20150119
  6. LUCENTIS [Suspect]
     Active Substance: RANIBIZUMAB
     Indication: AGE-RELATED MACULAR DEGENERATION
     Dosage: LEFT EYE, RECEIVED TOTAL 6 INJECTIONS.
     Route: 050
     Dates: start: 20140630
  7. D-CURE [Concomitant]
  8. URGENINE [Concomitant]
  9. L-THYROXINE [Concomitant]
     Active Substance: LEVOTHYROXINE
  10. ZANIDIP [Concomitant]
     Active Substance: LERCANIDIPINE HYDROCHLORIDE
  11. PERINDOPRIL [Concomitant]
     Active Substance: PERINDOPRIL

REACTIONS (4)
  - Ischaemic stroke [Recovered/Resolved with Sequelae]
  - Cognitive disorder [Recovered/Resolved with Sequelae]
  - Hemiparesis [Recovered/Resolved with Sequelae]
  - Motor dysfunction [Unknown]

NARRATIVE: CASE EVENT DATE: 201502
